FAERS Safety Report 4417778-3 (Version None)
Quarter: 2004Q3

REPORT INFORMATION
  Report Type: 
  Country: None (occurrence: None)
  Receive Date: 20040803
  Receipt Date: 20040721
  Transmission Date: 20050211
  Serious: Yes (Hospitalization)
  Sender: FDA-Public Use
  Company Number: CA-JNJFOC-20040706409

PATIENT
  Age: 68 Year
  Sex: Male
  Weight: 85 kg

DRUGS (2)
  1. REMICADE [Suspect]
     Indication: RHEUMATOID ARTHRITIS
     Dosage: 300 MG, 1 IN 6 WEEK, INTRAVENOUS
     Route: 042
     Dates: start: 20010329
  2. FERROUS SULFATE TAB [Concomitant]

REACTIONS (15)
  - AKINESIA [None]
  - ANAEMIA [None]
  - BLOOD PRESSURE DECREASED [None]
  - CARDIAC DISORDER [None]
  - CHEST DISCOMFORT [None]
  - DYSPNOEA [None]
  - HAEMATOMA [None]
  - HYPOKINESIA [None]
  - HYPOPERFUSION [None]
  - MITRAL VALVE STENOSIS [None]
  - MYOCARDIAL INFARCTION [None]
  - MYOCARDIAL ISCHAEMIA [None]
  - OEDEMA PERIPHERAL [None]
  - RENAL FAILURE [None]
  - TRICUSPID VALVE STENOSIS [None]
